FAERS Safety Report 5512915-1 (Version None)
Quarter: 2007Q4

REPORT INFORMATION
  Report Type: 
  Country: None (occurrence: None)
  Receive Date: 20071112
  Receipt Date: 20071102
  Transmission Date: 20080405
  Serious: Yes (Hospitalization)
  Sender: FDA-Public Use
  Company Number: B0494631A

PATIENT
  Age: 85 Year
  Sex: Male

DRUGS (9)
  1. FLIXOTIDE DISKUS [Suspect]
     Indication: DRUG USE FOR UNKNOWN INDICATION
     Dosage: 2PUFF PER DAY
     Route: 055
     Dates: end: 20070927
  2. MEMANTINE HCL [Suspect]
     Dosage: 10MG TWICE PER DAY
     Route: 048
  3. BI-TILDIEM 120 MG [Suspect]
     Dosage: 120MG TWICE PER DAY
     Route: 048
     Dates: end: 20070927
  4. IKOREL [Suspect]
     Dosage: 10MG TWICE PER DAY
     Route: 048
     Dates: end: 20070927
  5. CRESTOR [Suspect]
     Dosage: 20MG PER DAY
     Route: 048
     Dates: end: 20070927
  6. NITRODERM [Suspect]
     Dosage: 1PAT PER DAY
     Route: 062
     Dates: end: 20070927
  7. ASPIRIN [Concomitant]
     Route: 065
  8. PANTOPRAZOLE SODIUM [Concomitant]
     Route: 065
  9. ATORVASTATIN CALCIUM [Concomitant]
     Route: 065
     Dates: start: 20070927

REACTIONS (7)
  - ACUTE CORONARY SYNDROME [None]
  - ATRIOVENTRICULAR BLOCK COMPLETE [None]
  - ATRIOVENTRICULAR BLOCK SECOND DEGREE [None]
  - CONDUCTION DISORDER [None]
  - HYPERHIDROSIS [None]
  - NAUSEA [None]
  - TROPONIN [None]
